FAERS Safety Report 8909957 (Version 2)
Quarter: 2012Q4

REPORT INFORMATION
  Report Type: 
  Country: US (occurrence: US)
  Receive Date: 20121114
  Receipt Date: 20121207
  Transmission Date: 20130627
  Serious: Yes (Death)
  Sender: FDA-Public Use
  Company Number: US-ENDO PHARMACEUTICALS INC.-OPCR20122000

PATIENT
  Age: 50 Year
  Sex: Female
  Weight: 55.39 kg

DRUGS (2)
  1. OPANA ER [Suspect]
     Indication: PAIN
     Route: 048
     Dates: start: 2012
  2. OPANA ER [Suspect]
     Route: 048
     Dates: start: 2012

REACTIONS (1)
  - Malignant neoplasm progression [None]
